FAERS Safety Report 18414357 (Version 1)
Quarter: 2020Q4

REPORT INFORMATION
  Report Type: Spontaneous
  Country: IL (occurrence: IL)
  Receive Date: 20201022
  Receipt Date: 20201022
  Transmission Date: 20210114
  Serious: Yes (Hospitalization)
  Sender: FDA-Public Use
  Company Number: IL-EISAI MEDICAL RESEARCH-EC-2020-082195

PATIENT
  Age: 63 Year
  Sex: Female

DRUGS (7)
  1. FYCOMPA [Suspect]
     Active Substance: PERAMPANEL
     Dosage: UNKNOWN REDUCED DOSE
     Route: 048
  2. STUNARONE [Concomitant]
     Indication: PRODUCT USED FOR UNKNOWN INDICATION
     Dosage: DOSE AND FREQUENCY NOT PROVIDED
  3. TEGRETOL XR [Concomitant]
     Active Substance: CARBAMAZEPINE
     Indication: PRODUCT USED FOR UNKNOWN INDICATION
     Dosage: FREQUENCY NOT PROVIDED
  4. FYCOMPA [Suspect]
     Active Substance: PERAMPANEL
     Indication: EPILEPSY
     Route: 048
  5. FRISIUM [Concomitant]
     Active Substance: CLOBAZAM
     Indication: PRODUCT USED FOR UNKNOWN INDICATION
     Dosage: DOSE AND FREQUENCY NOT PROVIDED
  6. ELATROL [Concomitant]
     Indication: PRODUCT USED FOR UNKNOWN INDICATION
     Dosage: DOSE AND FREQUENCY NOT PROVIDED
  7. ATORVA - DEX 20 [Concomitant]
     Indication: PRODUCT USED FOR UNKNOWN INDICATION
     Dosage: DOSE AND FREQUENCY NOT PROVIDED

REACTIONS (5)
  - Nausea [Unknown]
  - Urinary tract infection [Unknown]
  - Dizziness [Unknown]
  - Abdominal pain [Unknown]
  - Muscular weakness [Unknown]
